FAERS Safety Report 5581406-4 (Version None)
Quarter: 2008Q1

REPORT INFORMATION
  Report Type: 
  Country: None (occurrence: None)
  Receive Date: 20080104
  Receipt Date: 20071227
  Transmission Date: 20080703
  Serious: Yes (Life-Threatening, Other)
  Sender: FDA-Public Use
  Company Number: FR-ABBOTT-07P-056-0429729-00

PATIENT
  Sex: Female

DRUGS (7)
  1. HUMIRA [Suspect]
     Indication: SPONDYLITIS
     Route: 058
     Dates: start: 20070327, end: 20071010
  2. MORPHINE SULFATE [Suspect]
     Indication: PAIN
  3. MORPHINE SULFATE [Suspect]
     Route: 048
  4. BENZODIAZEPINES [Suspect]
     Indication: DRUG USE FOR UNKNOWN INDICATION
     Dates: start: 20071016, end: 20071016
  5. HYDROMORPHONE HYDROCHLORIDE [Suspect]
     Indication: PAIN
     Route: 048
  6. ALPRAZOLAM [Suspect]
     Indication: ANXIETY
     Route: 048
  7. AUGMENTIN '250' [Suspect]
     Indication: LUNG DISORDER
     Route: 065
     Dates: start: 20071010

REACTIONS (12)
  - COMA [None]
  - DEHYDRATION [None]
  - DIARRHOEA [None]
  - HYPOVOLAEMIC SHOCK [None]
  - LUNG DISORDER [None]
  - MIOSIS [None]
  - MULTIPLE DRUG OVERDOSE [None]
  - PULMONARY EMBOLISM [None]
  - RENAL FAILURE ACUTE [None]
  - SEPSIS [None]
  - STAPHYLOCOCCAL INFECTION [None]
  - VOMITING [None]
